FAERS Safety Report 10266281 (Version 1)
Quarter: 2014Q2

REPORT INFORMATION
  Report Type: Spontaneous
  Country: US (occurrence: US)
  Receive Date: 20140627
  Receipt Date: 20140627
  Transmission Date: 20141212
  Serious: No
  Sender: FDA-Public Use
  Company Number: US-ASTRAZENECA-2014SE05966

PATIENT
  Age: 38 Year
  Sex: Female
  Weight: 54.4 kg

DRUGS (3)
  1. SEROQUEL XR [Suspect]
     Indication: AFFECTIVE DISORDER
     Route: 048
     Dates: start: 2013, end: 20140117
  2. RESTORIL [Concomitant]
     Route: 048
  3. LATUDA [Concomitant]
     Route: 048

REACTIONS (4)
  - Exposure during pregnancy [Unknown]
  - Depression [Unknown]
  - Anxiety [Unknown]
  - Therapy cessation [None]
